FAERS Safety Report 10614164 (Version 4)
Quarter: 2015Q1

REPORT INFORMATION
  Report Type: Spontaneous
  Country: US (occurrence: US)
  Receive Date: 20141128
  Receipt Date: 20150217
  Transmission Date: 20150720
  Serious: Yes (Death, Hospitalization)
  Sender: FDA-Public Use
  Company Number: US-PFIZER INC-2014326836

PATIENT
  Age: 64 Year
  Sex: Male

DRUGS (3)
  1. SUTENT [Suspect]
     Active Substance: SUNITINIB MALATE
     Dosage: 37.5 MG, DAILY
     Route: 048
     Dates: start: 20141119, end: 20141212
  2. SUTENT [Suspect]
     Active Substance: SUNITINIB MALATE
     Indication: SARCOMA METASTATIC
     Dosage: 50 MG, 1X/DAY
     Route: 048
  3. SUTENT [Suspect]
     Active Substance: SUNITINIB MALATE
     Dosage: 37.5 MG, 1X/DAY
     Route: 048

REACTIONS (13)
  - Constipation [Unknown]
  - Hypovolaemia [Unknown]
  - Sarcoma metastatic [Fatal]
  - Dehydration [Unknown]
  - Product use issue [Unknown]
  - Malaise [Unknown]
  - Disease progression [Fatal]
  - Ascites [Unknown]
  - Asthenia [Unknown]
  - Fatigue [Unknown]
  - Vomiting [Not Recovered/Not Resolved]
  - Weight decreased [Unknown]
  - Nausea [Not Recovered/Not Resolved]

NARRATIVE: CASE EVENT DATE: 20141125
